FAERS Safety Report 9330956 (Version 1)
Quarter: 2013Q2

REPORT INFORMATION
  Report Type: Report from Study
  Country: CN (occurrence: CN)
  Receive Date: 20130605
  Receipt Date: 20130605
  Transmission Date: 20140414
  Serious: Yes (Death)
  Sender: FDA-Public Use
  Company Number: CN-SANOFI-AVENTIS-2013SA053951

PATIENT
  Age: 81 Year
  Sex: Male

DRUGS (3)
  1. OXALIPLATIN [Suspect]
     Indication: DIFFUSE LARGE B-CELL LYMPHOMA
     Dosage: GIVEN IN 250 ML OF 5 % GLUCOSE SOLUTION OVER 2 HOURS ON DAY 1
     Route: 042
  2. GEMCITABINE [Suspect]
     Indication: DIFFUSE LARGE B-CELL LYMPHOMA
     Dosage: ADDED TO 500 ML OF 0.9 % NACL WITH DEEP VEIN INFUSION RATE FIXED AT 10 MG/M2 PER MIN; GIVEN ON DAY 1
     Route: 042
  3. ANTIEMETICS AND ANTINAUSEANTS [Concomitant]

REACTIONS (1)
  - Cardiac failure [Fatal]
